FAERS Safety Report 7883966-7 (Version None)
Quarter: 2011Q4

REPORT INFORMATION
  Report Type: 
  Country: None (occurrence: None)
  Receive Date: 20111102
  Receipt Date: 20111019
  Transmission Date: 20120403
  Serious: Yes (Death, Hospitalization, Congenital Anomaly)
  Sender: FDA-Public Use
  Company Number: PHHY2011DK96229

PATIENT
  Sex: Female

DRUGS (1)
  1. PARLODEL [Suspect]
     Indication: INFERTILITY
     Route: 064

REACTIONS (4)
  - OESOPHAGEAL ATRESIA [None]
  - DEATH [None]
  - CONGENITAL HYDROCEPHALUS [None]
  - MATERNAL EXPOSURE DURING PREGNANCY [None]
